FAERS Safety Report 17581467 (Version 1)
Quarter: 2020Q1

REPORT INFORMATION
  Report Type: Spontaneous
  Country: US (occurrence: US)
  Receive Date: 20200323
  Receipt Date: 20200323
  Transmission Date: 20200409
  Serious: No
  Sender: FDA-Public Use
  Company Number: None

PATIENT
  Age: 56 Year
  Sex: Female
  Weight: 122.47 kg

DRUGS (1)
  1. TADALAFIL 20MG TAB [Suspect]
     Active Substance: TADALAFIL
     Indication: PULMONARY ARTERIAL HYPERTENSION
     Route: 048
     Dates: start: 20200122, end: 20200124

REACTIONS (4)
  - Fluid retention [None]
  - Swelling [None]
  - Atrial fibrillation [None]
  - Product substitution issue [None]

NARRATIVE: CASE EVENT DATE: 20200124
